FAERS Safety Report 6330287-X (Version None)
Quarter: 2009Q3

REPORT INFORMATION
  Report Type: 
  Country: None (occurrence: None)
  Receive Date: 20090827
  Receipt Date: 20090622
  Transmission Date: 20100115
  Serious: No
  Sender: FDA-Public Use
  Company Number: US-KINGPHARMUSA00001-K200900745

PATIENT
  Sex: Male
  Weight: 78.005 kg

DRUGS (2)
  1. FLECTOR [Suspect]
     Indication: BACK PAIN
     Dosage: 1 PATCH, QD
     Route: 061
     Dates: start: 20090401
  2. FLECTOR [Suspect]
     Dosage: 1 PATCH, QD
     Route: 061
     Dates: start: 20090601

REACTIONS (4)
  - CONDITION AGGRAVATED [None]
  - DRUG INEFFECTIVE [None]
  - FALL [None]
  - MUSCULAR WEAKNESS [None]
